FAERS Safety Report 6069310-9 (Version None)
Quarter: 2009Q1

REPORT INFORMATION
  Report Type: 
  Country: None (occurrence: None)
  Receive Date: 20090206
  Receipt Date: 20090129
  Transmission Date: 20090719
  Serious: Yes (Hospitalization)
  Sender: FDA-Public Use
  Company Number: DE-PFIZER INC-2008154851

PATIENT

DRUGS (4)
  1. LYRICA [Suspect]
     Indication: EPILEPSY
     Dosage: 75 MG, 2X/DAY
     Route: 048
     Dates: start: 20081205
  2. KEPPRA [Suspect]
     Indication: EPILEPSY
     Dosage: 500 MG IN THE MORNING, 750 MG IN THE EVENING
     Dates: start: 20081106
  3. PIRETANIDE [Concomitant]
     Dosage: UNK
     Route: 048
  4. DIPIPERON [Concomitant]
     Dosage: UNK
     Route: 048

REACTIONS (1)
  - HYPOTHERMIA [None]
